FAERS Safety Report 12758403 (Version 2)
Quarter: 2016Q4

REPORT INFORMATION
  Report Type: Spontaneous
  Country: US (occurrence: US)
  Receive Date: 20160919
  Receipt Date: 20161013
  Transmission Date: 20170207
  Serious: No
  Sender: FDA-Public Use
  Company Number: US-PFIZER INC-2016436063

PATIENT
  Age: 3 Decade
  Sex: Female

DRUGS (1)
  1. FLAGYL [Suspect]
     Active Substance: METRONIDAZOLE\METRONIDAZOLE HYDROCHLORIDE
     Dosage: UNK, 2X/DAY
     Dates: start: 1980, end: 2000

REACTIONS (1)
  - Gastrointestinal disorder [Unknown]
